FAERS Safety Report 5866028-X (Version None)
Quarter: 2008Q3

REPORT INFORMATION
  Report Type: 
  Country: None (occurrence: None)
  Receive Date: 20080829
  Receipt Date: 20080818
  Transmission Date: 20090109
  Serious: Yes (Other)
  Sender: FDA-Public Use
  Company Number: US-PFIZER INC-2008062331

PATIENT
  Sex: Male
  Weight: 72.6 kg

DRUGS (3)
  1. DILANTIN [Suspect]
     Indication: CONVULSION
     Route: 048
  2. ATENOLOL [Concomitant]
  3. VITAMIN D [Concomitant]

REACTIONS (7)
  - ANTICONVULSANT DRUG LEVEL INCREASED [None]
  - DIZZINESS [None]
  - FEELING ABNORMAL [None]
  - HYPOAESTHESIA [None]
  - LETHARGY [None]
  - PARAESTHESIA [None]
  - SOMNOLENCE [None]
